FAERS Safety Report 17570528 (Version 1)
Quarter: 2020Q1

REPORT INFORMATION
  Report Type: Report from Study
  Country: FR (occurrence: FR)
  Receive Date: 20200323
  Receipt Date: 20200323
  Transmission Date: 20200409
  Serious: Yes (Other)
  Sender: FDA-Public Use
  Company Number: FR-BRISTOL-MYERS SQUIBB COMPANY-BMS-2020-022688

PATIENT
  Age: 68 Year
  Sex: Female
  Weight: 57.7 kg

DRUGS (1)
  1. NIVOLUMAB [Suspect]
     Active Substance: NIVOLUMAB
     Indication: MALIGNANT NEOPLASM OF THYMUS
     Dosage: UNK
     Route: 065
     Dates: start: 20190923

REACTIONS (1)
  - Deafness [Unknown]
